FAERS Safety Report 11269655 (Version 7)
Quarter: 2018Q2

REPORT INFORMATION
  Report Type: Spontaneous
  Country: AT (occurrence: AT)
  Receive Date: 20150714
  Receipt Date: 20180416
  Transmission Date: 20180711
  Serious: Yes (Other)
  Sender: FDA-Public Use
  Company Number: AT-AMGEN-AUTSP2015069011

PATIENT
  Age: 87 Year
  Sex: Male
  Weight: 66 kg

DRUGS (8)
  1. PROCORALAN [Suspect]
     Active Substance: IVABRADINE
     Indication: CORONARY ARTERY DISEASE
     Dosage: 5 MG, BID
     Route: 048
     Dates: start: 201505, end: 20150628
  2. THALLIUM [Suspect]
     Active Substance: THALLIUM
     Indication: SCAN MYOCARDIAL PERFUSION
     Dosage: UNK, SINGLE
     Route: 042
     Dates: start: 20150626, end: 20150626
  3. OLEOVIT D3 [Concomitant]
     Active Substance: CHOLECALCIFEROL
     Indication: PRODUCT USED FOR UNKNOWN INDICATION
     Dosage: UNK
  4. PROCORALAN [Suspect]
     Active Substance: IVABRADINE
     Dosage: 5 MG, BID
     Route: 048
     Dates: start: 20150702
  5. FORTIMEL [Concomitant]
     Active Substance: DIETARY SUPPLEMENT
     Indication: MEDICAL DIET
     Dosage: UNK
  6. PERSANTIN [Suspect]
     Active Substance: DIPYRIDAMOLE
     Indication: CARDIAC STRESS TEST
     Dosage: 1 DF, QD (SINGLE)
     Route: 042
     Dates: start: 20150626, end: 20150626
  7. SERETIDE [Concomitant]
     Active Substance: FLUTICASONE PROPIONATE\SALMETEROL XINAFOATE
     Indication: CHRONIC OBSTRUCTIVE PULMONARY DISEASE
     Dosage: UNK
     Route: 048
  8. BERODUAL [Concomitant]
     Active Substance: FENOTEROL HYDROBROMIDE\IPRATROPIUM BROMIDE
     Indication: CHRONIC OBSTRUCTIVE PULMONARY DISEASE
     Dosage: UNK AS NECESSARY
     Route: 048

REACTIONS (2)
  - Angioedema [Recovered/Resolved]
  - Necrosis [Recovered/Resolved]

NARRATIVE: CASE EVENT DATE: 20150628
